FAERS Safety Report 21756896 (Version 3)
Quarter: 2023Q1

REPORT INFORMATION
  Report Type: Report from Study
  Country: FR (occurrence: None)
  Receive Date: 20221220
  Receipt Date: 20230110
  Transmission Date: 20230418
  Serious: Yes (Death)
  Sender: FDA-Public Use
  Company Number: 2022A409561

PATIENT
  Age: 27650 Day
  Sex: Male
  Weight: 68 kg

DRUGS (16)
  1. EVUSHELD [Suspect]
     Active Substance: CILGAVIMAB\TIXAGEVIMAB
     Indication: COVID-19 prophylaxis
     Dosage: 300 MG (TIXAGEVIMAB 150 MG/CILGAVIMAB 150 MG ONCE/SINGLE ADMINISTRATION
     Route: 030
     Dates: start: 20220208
  2. CELLCEPT [Concomitant]
     Active Substance: MYCOPHENOLATE MOFETIL
     Indication: Immunosuppressant drug therapy
     Route: 065
  3. PROGRAF [Concomitant]
     Active Substance: TACROLIMUS
     Indication: Immunosuppressant drug therapy
     Route: 065
  4. MYFORTIC [Concomitant]
     Active Substance: MYCOPHENOLATE SODIUM
  5. SOLUPRED [Concomitant]
     Dosage: 10.0MG UNKNOWN
  6. TOUJEO [Concomitant]
     Active Substance: INSULIN GLARGINE
  7. NOVORAPID [Concomitant]
     Active Substance: INSULIN ASPART
  8. LANSOPRAZOLE [Concomitant]
     Active Substance: LANSOPRAZOLE
     Dosage: 15.0MG UNKNOWN
  9. AMIODARONE [Concomitant]
     Active Substance: AMIODARONE
     Dosage: 200.0MG UNKNOWN
  10. BISOPROLOL [Concomitant]
     Active Substance: BISOPROLOL
     Dosage: 5.0MG UNKNOWN
  11. LERCANIDIPINE [Concomitant]
     Active Substance: LERCANIDIPINE
  12. URAPIDIL [Concomitant]
     Active Substance: URAPIDIL
  13. RILMENIDINE [Concomitant]
     Active Substance: RILMENIDINE
     Dosage: 1.0MG UNKNOWN
  14. KARDEGIC [Concomitant]
     Active Substance: ASPIRIN DL-LYSINE
     Dosage: 75.0MG UNKNOWN
  15. FUROSEMINE [Concomitant]
  16. ELIQUIS [Concomitant]
     Active Substance: APIXABAN
     Dosage: 2.5MG UNKNOWN

REACTIONS (1)
  - Cardiac failure [Fatal]

NARRATIVE: CASE EVENT DATE: 20220320
